FAERS Safety Report 17356627 (Version 2)
Quarter: 2020Q1

REPORT INFORMATION
  Report Type: Report from Study
  Country: US (occurrence: US)
  Receive Date: 20200131
  Receipt Date: 20200320
  Transmission Date: 20200409
  Serious: Yes (Death)
  Sender: FDA-Public Use
  Company Number: US-BAUSCH-BL-2020-002993

PATIENT
  Age: 67 Year
  Sex: Female
  Weight: 103.97 kg

DRUGS (4)
  1. OXSORALEN-ULTRA [Suspect]
     Active Substance: METHOXSALEN
     Indication: PRURITUS
     Route: 048
     Dates: start: 20190903
  2. OXSORALEN-ULTRA [Suspect]
     Active Substance: METHOXSALEN
     Indication: PRODUCT USE IN UNAPPROVED INDICATION
  3. TARGRETIN [Suspect]
     Active Substance: BEXAROTENE
     Indication: CD30 EXPRESSION
     Route: 048
     Dates: start: 20190424
  4. TARGRETIN [Suspect]
     Active Substance: BEXAROTENE
     Indication: LYMPHOPROLIFERATIVE DISORDER

REACTIONS (3)
  - Inappropriate schedule of product administration [Unknown]
  - Product use in unapproved indication [Unknown]
  - Cardiac arrest [Fatal]

NARRATIVE: CASE EVENT DATE: 20190424
